FAERS Safety Report 20872317 (Version 1)
Quarter: 2022Q2

REPORT INFORMATION
  Report Type: Spontaneous
  Country: US (occurrence: None)
  Receive Date: 20220525
  Receipt Date: 20220525
  Transmission Date: 20220721
  Serious: No
  Sender: FDA-Public Use
  Company Number: None

PATIENT

DRUGS (1)
  1. LAMOTRIGINE [Suspect]
     Active Substance: LAMOTRIGINE

REACTIONS (4)
  - Mucosal disorder [None]
  - Mucosal haemorrhage [None]
  - Mucosal inflammation [None]
  - Skin exfoliation [None]

NARRATIVE: CASE EVENT DATE: 20200607
